FAERS Safety Report 13760368 (Version 1)
Quarter: 2017Q3

REPORT INFORMATION
  Report Type: Spontaneous
  Country: FR (occurrence: FR)
  Receive Date: 20170717
  Receipt Date: 20170717
  Transmission Date: 20171127
  Serious: Yes (Hospitalization)
  Sender: FDA-Public Use
  Company Number: PHHY2017FR098556

PATIENT
  Age: 62 Year
  Sex: Male

DRUGS (12)
  1. RIMACTAN [Suspect]
     Active Substance: RIFAMPIN
     Indication: ANTIBIOTIC THERAPY
  2. LOVENOX [Suspect]
     Active Substance: ENOXAPARIN SODIUM
     Dosage: 4000 IU, UNK
     Route: 065
  3. SOLUPRED [Concomitant]
     Active Substance: PREDNISOLONE
     Indication: PRODUCT USED FOR UNKNOWN INDICATION
     Dosage: 80 MG, QD, FOR 3 WEEKS
     Route: 065
  4. FENOFIBRATE. [Concomitant]
     Active Substance: FENOFIBRATE
     Indication: PRODUCT USED FOR UNKNOWN INDICATION
     Dosage: 1 DF, QD
     Route: 065
  5. BIPRETERAX [Concomitant]
     Active Substance: INDAPAMIDE\PERINDOPRIL
     Indication: PRODUCT USED FOR UNKNOWN INDICATION
     Dosage: 1 DF, QD
     Route: 065
  6. LOVENOX [Suspect]
     Active Substance: ENOXAPARIN SODIUM
     Indication: PRODUCT USED FOR UNKNOWN INDICATION
     Dosage: 6000 IU, UNK
     Route: 065
  7. RIMACTAN [Suspect]
     Active Substance: RIFAMPIN
     Indication: STAPHYLOCOCCAL INFECTION
     Dosage: 4 DF, QD
     Route: 065
  8. HUMAN NORMAL IMMUNOGLOBULIN [Concomitant]
     Active Substance: HUMAN IMMUNOGLOBULIN G
     Indication: PRODUCT USED FOR UNKNOWN INDICATION
     Route: 065
  9. METFORMINE [Concomitant]
     Active Substance: METFORMIN HYDROCHLORIDE
     Indication: PRODUCT USED FOR UNKNOWN INDICATION
     Dosage: 2 DF, QD
     Route: 065
  10. OFLOCET [Suspect]
     Active Substance: OFLOXACIN
     Indication: STAPHYLOCOCCAL INFECTION
     Dosage: 600 MG, QD
     Route: 065
  11. OFLOCET [Suspect]
     Active Substance: OFLOXACIN
     Indication: ANTIBIOTIC THERAPY
     Dosage: 400 MG, UNK
     Route: 065
     Dates: start: 20170523
  12. SOLU-MEDROL [Concomitant]
     Active Substance: METHYLPREDNISOLONE SODIUM SUCCINATE
     Indication: PRODUCT USED FOR UNKNOWN INDICATION
     Route: 065

REACTIONS (2)
  - Aplastic anaemia [Not Recovered/Not Resolved]
  - Acute kidney injury [Recovered/Resolved]

NARRATIVE: CASE EVENT DATE: 20170511
